FAERS Safety Report 8449117-5 (Version None)
Quarter: 2012Q2

REPORT INFORMATION
  Report Type: 
  Country: None (occurrence: None)
  Receive Date: 20120619
  Receipt Date: 20120611
  Transmission Date: 20120825
  Serious: Yes (Other)
  Sender: FDA-Public Use
  Company Number: US-JNJFOC-20120515466

PATIENT
  Sex: Female
  Weight: 81.19 kg

DRUGS (5)
  1. AZATHIOPRINE [Suspect]
     Indication: CROHN'S DISEASE
     Route: 048
     Dates: start: 20070101, end: 20120326
  2. REMICADE [Suspect]
     Indication: CROHN'S DISEASE
     Route: 042
     Dates: start: 20120518
  3. REMICADE [Suspect]
     Route: 042
     Dates: start: 20100101, end: 20120326
  4. REMICADE [Suspect]
     Route: 042
     Dates: start: 20070101, end: 20100101
  5. PRILOSEC [Concomitant]
     Indication: DYSPEPSIA
     Route: 048
     Dates: start: 20070101

REACTIONS (3)
  - MALIGNANT MELANOMA IN SITU [None]
  - MELANOCYTIC HYPERPLASIA [None]
  - HYPERKERATOSIS [None]
